FAERS Safety Report 4343065-8 (Version None)
Quarter: 2004Q2

REPORT INFORMATION
  Report Type: 
  Country: None (occurrence: None)
  Receive Date: 20040421
  Receipt Date: 20040413
  Transmission Date: 20050107
  Serious: Yes (Other)
  Sender: FDA-Public Use
  Company Number: US-BRISTOL-MYERS SQUIBB COMPANY-12565446

PATIENT
  Age: 60 Year
  Sex: Male

DRUGS (2)
  1. ERBITUX [Suspect]
     Indication: COLORECTAL CANCER
     Dosage: 400 MG/M2 (800 MG)
     Route: 042
     Dates: start: 20040412, end: 20040412
  2. BENADRYL [Concomitant]
     Indication: PREMEDICATION

REACTIONS (6)
  - DIZZINESS [None]
  - HYPOTENSION [None]
  - PRURITUS [None]
  - RETCHING [None]
  - SWELLING FACE [None]
  - URTICARIA [None]
